FAERS Safety Report 7560124-7 (Version None)
Quarter: 2011Q2

REPORT INFORMATION
  Report Type: 
  Country: None (occurrence: None)
  Receive Date: 20110621
  Receipt Date: 20101202
  Transmission Date: 20111010
  Serious: Yes (Hospitalization)
  Sender: FDA-Public Use
  Company Number: A0899129A

PATIENT
  Sex: Male

DRUGS (1)
  1. AVANDIA [Suspect]
     Indication: DIABETES MELLITUS
     Route: 048

REACTIONS (6)
  - CARDIAC HYPERTROPHY [None]
  - CARDIOVASCULAR DISORDER [None]
  - DEPRESSION [None]
  - DYSPNOEA [None]
  - CARDIOMEGALY [None]
  - WEIGHT INCREASED [None]
